FAERS Safety Report 4724352-8 (Version None)
Quarter: 2005Q3

REPORT INFORMATION
  Report Type: 
  Country: None (occurrence: None)
  Receive Date: 20050726
  Receipt Date: 20050118
  Transmission Date: 20060218
  Serious: No
  Sender: FDA-Public Use
  Company Number: US-GLAXOSMITHKLINE-A0541096A

PATIENT
  Age: 86 Year
  Sex: Female
  Weight: 60 kg

DRUGS (1)
  1. HYCAMTIN [Suspect]
     Indication: OVARIAN CANCER
     Dosage: 3MG SINGLE DOSE
     Route: 042
     Dates: start: 20050117

REACTIONS (2)
  - DRUG ADMINISTRATION ERROR [None]
  - NAUSEA [None]
